FAERS Safety Report 12990148 (Version 1)
Quarter: 2016Q4

REPORT INFORMATION
  Report Type: Spontaneous
  Country: US (occurrence: US)
  Receive Date: 20161201
  Receipt Date: 20161201
  Transmission Date: 20170207
  Serious: No
  Sender: FDA-Public Use
  Company Number: US-BAYER-2016-227371

PATIENT
  Age: 65 Year
  Sex: Female
  Weight: 63.49 kg

DRUGS (1)
  1. MIRALAX [Suspect]
     Active Substance: POLYETHYLENE GLYCOL 3350
     Indication: COLONOSCOPY
     Dosage: 1 BOTTLE
     Route: 048
     Dates: start: 20160612, end: 20160612

REACTIONS (3)
  - Circumstance or information capable of leading to medication error [Unknown]
  - Off label use [Unknown]
  - Circumstance or information capable of leading to medication error [None]

NARRATIVE: CASE EVENT DATE: 20160612
